FAERS Safety Report 9573322 (Version 2)
Quarter: 2013Q4

REPORT INFORMATION
  Report Type: Spontaneous
  Country: GB (occurrence: None)
  Receive Date: 20130927
  Receipt Date: 20131009
  Transmission Date: 20140711
  Serious: Yes (Other)
  Sender: FDA-Public Use
  Company Number: KAD201309-001225

PATIENT
  Age: 48 Year
  Sex: Male

DRUGS (3)
  1. RIBAVIRIN [Suspect]
     Indication: HEPATITIS C
     Route: 048
     Dates: start: 20130107
  2. PEGINTERFERON ALFA-2B [Suspect]
     Indication: HEPATITIS C
     Route: 058
     Dates: start: 20130107
  3. INCIVO [Suspect]
     Route: 048
     Dates: start: 20130107

REACTIONS (6)
  - Anorectal discomfort [None]
  - Fatigue [None]
  - Haemorrhoids [None]
  - Pruritus [None]
  - Rash [None]
  - Vision blurred [None]
